FAERS Safety Report 20387112 (Version 2)
Quarter: 2022Q1

REPORT INFORMATION
  Report Type: Report from Study
  Country: RO (occurrence: RO)
  Receive Date: 20220127
  Receipt Date: 20220302
  Transmission Date: 20220424
  Serious: Yes (Death, Life-Threatening, Hospitalization, Other)
  Sender: FDA-Public Use
  Company Number: RO-ABBVIE-22K-135-4253284-00

PATIENT
  Age: 64 Year
  Sex: Male

DRUGS (2)
  1. CARBIDOPA\LEVODOPA [Suspect]
     Active Substance: CARBIDOPA\LEVODOPA
     Indication: Parkinson^s disease
     Dosage: DM=13.00 DC=4.90 ED=2.00 NRED=2; DMN=0.00 DCN=1.30 EDN=1.30 NREDN=0
     Route: 050
     Dates: start: 20190604
  2. CARBIDOPA\LEVODOPA [Suspect]
     Active Substance: CARBIDOPA\LEVODOPA

REACTIONS (7)
  - General physical health deterioration [Fatal]
  - Cardio-respiratory arrest [Fatal]
  - Respiratory failure [Fatal]
  - Pneumonia [Fatal]
  - Coma [Fatal]
  - Unresponsive to stimuli [Unknown]
  - Malaise [Unknown]

NARRATIVE: CASE EVENT DATE: 20220125
